FAERS Safety Report 7978036-3 (Version None)
Quarter: 2011Q4

REPORT INFORMATION
  Report Type: 
  Country: None (occurrence: None)
  Receive Date: 20111214
  Receipt Date: 20111209
  Transmission Date: 20120403
  Serious: No
  Sender: FDA-Public Use
  Company Number: US-BIOGENIDEC-2011BI046990

PATIENT
  Sex: Female

DRUGS (2)
  1. TYSABRI [Suspect]
     Indication: MULTIPLE SCLEROSIS
     Route: 042
     Dates: start: 20110216
  2. TYSABRI [Suspect]
     Route: 042
     Dates: start: 20110822, end: 20111208

REACTIONS (4)
  - DRUG INEFFECTIVE [None]
  - BODY TEMPERATURE INCREASED [None]
  - MENTAL IMPAIRMENT [None]
  - PAIN [None]
